FAERS Safety Report 7626601-5 (Version None)
Quarter: 2011Q3

REPORT INFORMATION
  Report Type: 
  Country: None (occurrence: None)
  Receive Date: 20110721
  Receipt Date: 20110713
  Transmission Date: 20111222
  Serious: Yes (Death)
  Sender: FDA-Public Use
  Company Number: PL-GLAXOSMITHKLINE-B0734223A

PATIENT
  Age: 69 Year
  Sex: Female

DRUGS (8)
  1. SERTRALINE HYDROCHLORIDE [Suspect]
     Route: 065
  2. VENLAFAXINE [Suspect]
     Route: 065
  3. OLANZAPINE [Suspect]
  4. MIRTAZAPINE [Suspect]
     Route: 065
  5. QUETIAPINE [Suspect]
     Route: 065
  6. REBOXETINE [Suspect]
     Route: 065
  7. ESCITALOPRAM [Suspect]
     Route: 065
  8. PAROXETINE HCL [Suspect]
     Indication: DEPRESSION
     Route: 065

REACTIONS (3)
  - PULMONARY EMBOLISM [None]
  - ANTIPHOSPHOLIPID ANTIBODIES [None]
  - EMBOLISM VENOUS [None]
